FAERS Safety Report 6100344-1 (Version None)
Quarter: 2009Q1

REPORT INFORMATION
  Report Type: 
  Country: None (occurrence: None)
  Receive Date: 20090303
  Receipt Date: 20090220
  Transmission Date: 20090719
  Serious: Yes (Other)
  Sender: FDA-Public Use
  Company Number: US-ELI_LILLY_AND_COMPANY-US200902005727

PATIENT
  Sex: Female

DRUGS (3)
  1. CYMBALTA [Suspect]
     Indication: MAJOR DEPRESSION
     Dosage: 60 MG, UNK
     Dates: start: 20080101
  2. NITROUS OXIDE [Concomitant]
     Dosage: 35 %, UNK
  3. CARBOCAINE [Concomitant]
     Dosage: 3 %, UNK

REACTIONS (5)
  - BLOOD PRESSURE INCREASED [None]
  - CHEST DISCOMFORT [None]
  - DRUG INTERACTION [None]
  - HEART RATE INCREASED [None]
  - UNRESPONSIVE TO STIMULI [None]
